FAERS Safety Report 18057579 (Version 2)
Quarter: 2020Q3

REPORT INFORMATION
  Report Type: Spontaneous
  Country: JP (occurrence: JP)
  Receive Date: 20200722
  Receipt Date: 20200824
  Transmission Date: 20201103
  Serious: Yes (Other)
  Sender: FDA-Public Use
  Company Number: JP-BEH-2020120115

PATIENT
  Age: 4 Month

DRUGS (2)
  1. ALBUMINAR?5 [Suspect]
     Active Substance: ALBUMIN HUMAN
     Route: 065
  2. ALBUMINAR?5 [Suspect]
     Active Substance: ALBUMIN HUMAN
     Route: 065

REACTIONS (2)
  - Hepatitis B antibody positive [Unknown]
  - Suspected transmission of an infectious agent via product [Unknown]

NARRATIVE: CASE EVENT DATE: 20200612
